FAERS Safety Report 9260026 (Version 2)
Quarter: 2014Q1

REPORT INFORMATION
  Report Type: Spontaneous
  Country: US (occurrence: US)
  Receive Date: 20130429
  Receipt Date: 20140110
  Transmission Date: 20141002
  Serious: Yes (Disabling, Other)
  Sender: FDA-Public Use
  Company Number: US-ASTRAZENECA-2013SE27663

PATIENT
  Age: 43 Year
  Sex: Male
  Weight: 83 kg

DRUGS (13)
  1. NEXIUM [Suspect]
     Indication: GASTROOESOPHAGEAL REFLUX DISEASE
     Route: 048
     Dates: start: 2000, end: 2010
  2. NEXIUM [Suspect]
     Indication: GASTROOESOPHAGEAL REFLUX DISEASE
     Route: 048
     Dates: start: 20030822
  3. HYDROCODONE [Suspect]
     Indication: PAIN
     Dosage: 7.6/650 MG, THREE TIMES DAILY
     Route: 065
  4. ZANTAC [Concomitant]
     Indication: DYSPEPSIA
  5. ULTRAM [Concomitant]
     Indication: PAIN
  6. FLEXERIL [Concomitant]
     Indication: PAIN
  7. ACETAMINO/CODEINE [Concomitant]
     Dosage: 300/30 MG
     Dates: start: 19971010
  8. PREDNISONE [Concomitant]
     Dates: start: 20050829
  9. CARISOPRODOL [Concomitant]
     Dates: start: 20070602
  10. CELEBREX [Concomitant]
     Dates: start: 20070720
  11. CYCLOBENZAPRINE [Concomitant]
     Dates: start: 20080818
  12. ATENOLOL [Concomitant]
     Dates: start: 20080516
  13. MELOXICAM [Concomitant]
     Dates: start: 20090203

REACTIONS (11)
  - Post laminectomy syndrome [Unknown]
  - Activities of daily living impaired [Unknown]
  - Intervertebral disc protrusion [Unknown]
  - Osteoporosis [Unknown]
  - Bone disorder [Unknown]
  - Multiple fractures [Unknown]
  - Bone loss [Unknown]
  - Dental caries [Unknown]
  - Hypertension [Unknown]
  - Vitamin D deficiency [Unknown]
  - Arthritis [Unknown]
